FAERS Safety Report 18917800 (Version 1)
Quarter: 2021Q1

REPORT INFORMATION
  Report Type: Spontaneous
  Country: IN (occurrence: IN)
  Receive Date: 20210219
  Receipt Date: 20210219
  Transmission Date: 20210420
  Serious: Yes (Other)
  Sender: FDA-Public Use
  Company Number: NVSC2021IN034483

PATIENT
  Sex: Female

DRUGS (2)
  1. RIBOCICLIB. [Suspect]
     Active Substance: RIBOCICLIB
     Indication: BREAST CANCER METASTATIC
     Dosage: UNK
     Route: 065
  2. ZOLEDRONIC ACID [Suspect]
     Active Substance: ZOLEDRONIC ACID
     Indication: PRODUCT USED FOR UNKNOWN INDICATION
     Dosage: UNK
     Route: 065

REACTIONS (9)
  - Breast cancer metastatic [Unknown]
  - Bone lesion [Unknown]
  - Metastases to bone [Unknown]
  - Headache [Unknown]
  - Malignant neoplasm progression [Unknown]
  - Osteoporosis [Unknown]
  - Electrocardiogram QT prolonged [Unknown]
  - Drug intolerance [Unknown]
  - Uveitis [Unknown]
